FAERS Safety Report 4286075-1 (Version None)
Quarter: 2004Q1

REPORT INFORMATION
  Report Type: 
  Country: None (occurrence: None)
  Receive Date: 20040120
  Receipt Date: 20021217
  Transmission Date: 20041129
  Serious: Yes (Life-Threatening)
  Sender: FDA-Public Use
  Company Number: 2001USA01020

PATIENT
  Age: 56 Year
  Sex: Male

DRUGS (6)
  1. PLAVIX [Suspect]
     Dosage: 75 MG OD - ORAL
     Route: 048
     Dates: start: 20010731
  2. CONTRAST MEDIUM (DURING THE HEART CATHETERIZATION) - FORM [Suspect]
     Dosage: ROUTE
     Dates: start: 20020701, end: 20020701
  3. ATENOLOL [Concomitant]
  4. ASPIRIN [Concomitant]
  5. TREATMENT A (STATIN) [Concomitant]
  6. TREATMENT B (GATIFLOXACIN OR PLACEBO) [Concomitant]

REACTIONS (1)
  - HYPERSENSITIVITY [None]
